FAERS Safety Report 9055518 (Version 1)
Quarter: 2013Q1

REPORT INFORMATION
  Report Type: Spontaneous
  Country: US (occurrence: US)
  Receive Date: 20130206
  Receipt Date: 20130206
  Transmission Date: 20140127
  Serious: Yes (Death)
  Sender: FDA-Public Use
  Company Number: US-GLAXOSMITHKLINE-A1010989A

PATIENT
  Age: 49 Year
  Sex: Female

DRUGS (8)
  1. VOTRIENT [Suspect]
     Indication: MALIGNANT NEOPLASM OF THORAX
     Dosage: 200MG PER DAY
     Route: 048
     Dates: start: 20120807, end: 20130118
  2. TYLENOL [Concomitant]
  3. MULTIVITAMIN [Concomitant]
  4. ZOFRAN [Concomitant]
  5. MORPHINE SULFATE [Concomitant]
  6. CIPRO [Concomitant]
  7. LYRICA [Concomitant]
  8. LISINOPRIL [Concomitant]

REACTIONS (1)
  - Death [Fatal]
